FAERS Safety Report 21831257 (Version 2)
Quarter: 2023Q1

REPORT INFORMATION
  Report Type: Spontaneous
  Country: US (occurrence: US)
  Receive Date: 20230106
  Receipt Date: 20230309
  Transmission Date: 20230418
  Serious: No
  Sender: FDA-Public Use
  Company Number: US-PFIZER INC-202201402085

PATIENT
  Age: 63 Year
  Sex: Female

DRUGS (15)
  1. IBRANCE [Suspect]
     Active Substance: PALBOCICLIB
     Dosage: 125 MG DAILY FOR 21 DAYS, THEN 7 DAYS OFF/ONE 125MG CAPSULE ON DAYS 1 THROUGH 21 AND 7 DAYS OFF
     Route: 048
  2. RAMIPRIL [Concomitant]
     Active Substance: RAMIPRIL
  3. AZELASTINE [Concomitant]
     Active Substance: AZELASTINE
  4. NAPROXEN [Concomitant]
     Active Substance: NAPROXEN
  5. FLUTICASONE [Concomitant]
     Active Substance: FLUTICASONE
  6. ATORVASTATIN [Concomitant]
     Active Substance: ATORVASTATIN
  7. TRAMADOL [Concomitant]
     Active Substance: TRAMADOL
  8. CLOBETASOL [Concomitant]
     Active Substance: CLOBETASOL
  9. AMOXICILLIN [Concomitant]
     Active Substance: AMOXICILLIN
  10. GABAPENTIN [Concomitant]
     Active Substance: GABAPENTIN
  11. DULOXETINE [Concomitant]
     Active Substance: DULOXETINE
  12. JANUVIA [Concomitant]
     Active Substance: SITAGLIPTIN PHOSPHATE
  13. FENTANYL [Concomitant]
     Active Substance: FENTANYL
  14. METFORMIN [Concomitant]
     Active Substance: METFORMIN HYDROCHLORIDE
  15. EXEMESTANE [Concomitant]
     Active Substance: EXEMESTANE

REACTIONS (1)
  - Pruritus [Not Recovered/Not Resolved]

NARRATIVE: CASE EVENT DATE: 20221108
